FAERS Safety Report 18331642 (Version 2)
Quarter: 2020Q4

REPORT INFORMATION
  Report Type: Spontaneous
  Country: RU (occurrence: RU)
  Receive Date: 20200930
  Receipt Date: 20201014
  Transmission Date: 20210113
  Serious: Yes (Other)
  Sender: FDA-Public Use
  Company Number: NVSC2020RU264699

PATIENT
  Age: 63 Year
  Sex: Female

DRUGS (2)
  1. DABRAFENIB [Suspect]
     Active Substance: DABRAFENIB
     Indication: PRODUCT USED FOR UNKNOWN INDICATION
     Dosage: 75 MG, BID
     Route: 065
     Dates: start: 201910
  2. MEKINIST [Suspect]
     Active Substance: TRAMETINIB DIMETHYL SULFOXIDE
     Indication: PRODUCT USED FOR UNKNOWN INDICATION
     Dosage: 2 MG, QD
     Route: 065

REACTIONS (8)
  - Oedema peripheral [Unknown]
  - Peripheral swelling [Unknown]
  - Face oedema [Unknown]
  - Ejection fraction decreased [Unknown]
  - Electrocardiogram repolarisation abnormality [Unknown]
  - Extrasystoles [Unknown]
  - Swelling face [Unknown]
  - Asthenia [Unknown]

NARRATIVE: CASE EVENT DATE: 201911
